FAERS Safety Report 13558734 (Version 1)
Quarter: 2017Q2

REPORT INFORMATION
  Report Type: Spontaneous
  Country: BR (occurrence: BR)
  Receive Date: 20170518
  Receipt Date: 20170518
  Transmission Date: 20170830
  Serious: Yes (Other)
  Sender: FDA-Public Use
  Company Number: PHHY2017BR061793

PATIENT
  Age: 7 Year
  Sex: Female

DRUGS (2)
  1. TRILEPTAL [Suspect]
     Active Substance: OXCARBAZEPINE
     Indication: PRODUCT USED FOR UNKNOWN INDICATION
     Route: 065
  2. LECTRUM [Suspect]
     Active Substance: LEUPROLIDE ACETATE
     Indication: GROWTH ACCELERATED
     Dosage: 15 MG, 4W
     Route: 058
     Dates: start: 20161129

REACTIONS (5)
  - Feeling abnormal [Unknown]
  - Migraine [Unknown]
  - Hallucination [Unknown]
  - Anxiety [Unknown]
  - Paraesthesia [Unknown]

NARRATIVE: CASE EVENT DATE: 20170321
